FAERS Safety Report 25088108 (Version 2)
Quarter: 2025Q1

REPORT INFORMATION
  Report Type: Spontaneous
  Country: GB (occurrence: GB)
  Receive Date: 20250318
  Receipt Date: 20250319
  Transmission Date: 20250408
  Serious: Yes (Death)
  Sender: MYLAN
  Company Number: GB-MYLANLABS-2025M1021181

PATIENT
  Sex: Female

DRUGS (2)
  1. METHOTREXATE [Interacting]
     Active Substance: METHOTREXATE
     Indication: Product used for unknown indication
  2. TRIMETHOPRIM [Interacting]
     Active Substance: TRIMETHOPRIM
     Indication: Product used for unknown indication

REACTIONS (3)
  - Neutropenic sepsis [Fatal]
  - Drug interaction [Fatal]
  - Medication error [Fatal]
